FAERS Safety Report 8340592-3 (Version None)
Quarter: 2012Q2

REPORT INFORMATION
  Report Type: 
  Country: None (occurrence: None)
  Receive Date: 20120507
  Receipt Date: 20120425
  Transmission Date: 20120825
  Serious: Yes (Other)
  Sender: FDA-Public Use
  Company Number: US-CELGENEUS-163-21880-12033092

PATIENT
  Sex: Female

DRUGS (4)
  1. COUMADIN [Concomitant]
     Indication: ANTICOAGULANT THERAPY
     Route: 065
  2. REVLIMID [Suspect]
     Indication: MULTIPLE MYELOMA
     Dosage: 5 MILLIGRAM
     Route: 048
     Dates: start: 20111228
  3. REVLIMID [Suspect]
     Dosage: 10 MILLIGRAM
     Route: 048
     Dates: start: 20120101
  4. REVLIMID [Suspect]
     Dosage: 15 MILLIGRAM
     Route: 048
     Dates: start: 20110301

REACTIONS (2)
  - BLOOD TEST ABNORMAL [None]
  - INTERNATIONAL NORMALISED RATIO INCREASED [None]
